FAERS Safety Report 16533419 (Version 2)
Quarter: 2019Q3

REPORT INFORMATION
  Report Type: Spontaneous
  Country: IN (occurrence: IN)
  Receive Date: 20190704
  Receipt Date: 20190719
  Transmission Date: 20191004
  Serious: Yes (Hospitalization, Other)
  Sender: FDA-Public Use
  Company Number: IN-PFIZER INC-2019281308

PATIENT
  Sex: Female

DRUGS (2)
  1. SUTENT [Suspect]
     Active Substance: SUNITINIB MALATE
     Indication: METASTATIC RENAL CELL CARCINOMA
     Dosage: 25 MG, UNK
  2. SUTENT [Suspect]
     Active Substance: SUNITINIB MALATE
     Dosage: 25 MG, 1X/DAY
     Route: 048
     Dates: start: 20171021

REACTIONS (15)
  - Back pain [Unknown]
  - Gait disturbance [Unknown]
  - Ascites [Unknown]
  - Constipation [Unknown]
  - Diastolic dysfunction [Unknown]
  - Spinal cord compression [Unknown]
  - Hypertension [Unknown]
  - Neoplasm progression [Unknown]
  - Blood albumin decreased [Unknown]
  - Pathological fracture [Unknown]
  - Haemoglobin decreased [Unknown]
  - Splenic vein thrombosis [Unknown]
  - Diabetes mellitus [Unknown]
  - Liver disorder [Unknown]
  - Aortic valve sclerosis [Unknown]

NARRATIVE: CASE EVENT DATE: 20171018
